FAERS Safety Report 10081901 (Version 1)
Quarter: 2014Q2

REPORT INFORMATION
  Report Type: Spontaneous
  Country: US (occurrence: US)
  Receive Date: 20140416
  Receipt Date: 20140416
  Transmission Date: 20141212
  Serious: Yes (Hospitalization)
  Sender: FDA-Public Use
  Company Number: US-GLAXOSMITHKLINE-A1068708A

PATIENT
  Age: 41 Year
  Sex: Female

DRUGS (8)
  1. LAMICTAL [Suspect]
     Indication: CONVULSION
     Dosage: 200MG TWICE PER DAY
     Route: 048
  2. LANTUS [Concomitant]
  3. HUMALOG [Concomitant]
  4. PRILOSEC [Concomitant]
  5. LISINOPRIL [Concomitant]
  6. PROZAC [Concomitant]
  7. ASPIRIN [Concomitant]
  8. POTASSIUM [Concomitant]

REACTIONS (2)
  - Diabetes mellitus inadequate control [Not Recovered/Not Resolved]
  - Convulsion [Unknown]
